FAERS Safety Report 9639673 (Version 1)
Quarter: 2013Q4

REPORT INFORMATION
  Report Type: Spontaneous
  Country: US (occurrence: US)
  Receive Date: 20131023
  Receipt Date: 20131023
  Transmission Date: 20140711
  Serious: No
  Sender: FDA-Public Use
  Company Number: US-009507513-1310USA009120

PATIENT
  Age: 51 Year
  Sex: Female

DRUGS (5)
  1. JANUVIA [Suspect]
     Indication: TYPE 2 DIABETES MELLITUS
     Dosage: UNKNOWN, ONCE A DAY
     Route: 048
     Dates: start: 201309
  2. AFLURIA [Suspect]
     Indication: PROPHYLAXIS
     Dates: start: 2013, end: 2013
  3. CALCITRIOL [Concomitant]
  4. AZOR (ALPRAZOLAM) [Concomitant]
  5. BYSTOLIC [Concomitant]

REACTIONS (4)
  - Swelling [Not Recovered/Not Resolved]
  - Dyspnoea [Not Recovered/Not Resolved]
  - Vision blurred [Not Recovered/Not Resolved]
  - Cough [Not Recovered/Not Resolved]
